FAERS Safety Report 17069057 (Version 2)
Quarter: 2020Q3

REPORT INFORMATION
  Report Type: Spontaneous
  Country: US (occurrence: US)
  Receive Date: 20191124
  Receipt Date: 20200724
  Transmission Date: 20201102
  Serious: Yes (Hospitalization)
  Sender: FDA-Public Use
  Company Number: US-B.I. PHARMACEUTICALS,INC./RIDGEFIELD-2017-BI-035606

PATIENT
  Age: 67 Year
  Sex: Male
  Weight: 168.73 kg

DRUGS (27)
  1. AMMONIUM LACTATE. [Concomitant]
     Active Substance: AMMONIUM LACTATE
     Indication: DRY SKIN
     Dosage: 12% LOTION, QUANTITY 240 FOR 30 DAYS; APPLY TO AFFECTED AREA ON SKIN TWICE A DAY FOR DRY SKIN
     Route: 061
  2. GLIPIZIDE. [Concomitant]
     Active Substance: GLIPIZIDE
     Indication: DIABETES MELLITUS
     Dosage: 180 FOR 90 DAYS; TAKE ONE TABLET BY MOUTH TWICE A DAY
     Route: 048
  3. NYSTATIN. [Concomitant]
     Active Substance: NYSTATIN
     Indication: PRURITUS
  4. LISINOPRIL. [Concomitant]
     Active Substance: LISINOPRIL
     Indication: BLOOD PRESSURE MEASUREMENT
     Dosage: TAKE ONE?HALF TABLET BY MOUTH EVERY DAY
     Route: 048
  5. LORATADINE. [Concomitant]
     Active Substance: LORATADINE
     Indication: PRODUCT USED FOR UNKNOWN INDICATION
     Route: 065
  6. BUMETANIDE. [Concomitant]
     Active Substance: BUMETANIDE
     Indication: DRUG THERAPY
     Dosage: TAKE ONE TABLET BY MOUTH TWICE A DAY (WATER PILL), 180 FOR 90 DAYS
     Route: 048
  7. CALCITRIOL. [Concomitant]
     Active Substance: CALCITRIOL
     Indication: VITAMIN SUPPLEMENTATION
     Dosage: TAKE ONE CAPSULE BY MOUTH EVERY DAY (VITAMIN SUPPLEMENT), 90 FOR 90 DAYS
     Route: 048
  8. FLUOXETINE HCL [Concomitant]
     Active Substance: FLUOXETINE HYDROCHLORIDE
     Indication: DEPRESSION
     Dosage: QT: 180 FOR 90 DAYS; TAKE 2 CAPSULE BY MOUTH EVERY DAY
     Route: 048
  9. METOPROLOL TARTRATE. [Concomitant]
     Active Substance: METOPROLOL TARTRATE
     Indication: BLOOD PRESSURE MEASUREMENT
     Dosage: TAKE ONE?HALF TABLET BY MOUTH TWICE A DAY
     Route: 048
  10. METOPROLOL TARTRATE. [Concomitant]
     Active Substance: METOPROLOL TARTRATE
     Indication: CARDIAC DISORDER
  11. VITAMIN D3 [Concomitant]
     Active Substance: CHOLECALCIFEROL
     Indication: VITAMIN SUPPLEMENTATION
     Dosage: 2000 UNIT, 90 FOR 90 DAYS; TAKE ONE TABLET BY MOUTH EVERY DAY
     Route: 048
  12. DOCUSATE SODIUM. [Concomitant]
     Active Substance: DOCUSATE SODIUM
     Indication: DRUG THERAPY
     Dosage: QT 200 FOR 90N DAYS; TAKE TWO CAPSULES BY MOUTH EVERY DAY
     Route: 048
  13. GLUCOSE [Concomitant]
     Active Substance: DEXTROSE
     Indication: DIABETES MELLITUS
     Dosage: USE 1 STRIP FOR TESTING AS DIRECTED
     Route: 065
  14. TIOTROPIUM [Concomitant]
     Active Substance: TIOTROPIUM
     Indication: RESPIRATORY DISORDER
     Dosage: PLACE 1 CAPSULE IN CHAMBER AND INHALE BY MOUTH EVERY DAY
     Route: 055
  15. INSULIN [Concomitant]
     Active Substance: INSULIN NOS
     Indication: DRUG THERAPY
     Dosage: 0.5ML 31G 5/16IN NOL, USE 1SYRINGE UNDER THE SKIN TWICE A DAY
     Route: 050
  16. PRADAXA [Suspect]
     Active Substance: DABIGATRAN ETEXILATE MESYLATE
     Indication: ATRIAL FIBRILLATION
     Route: 048
     Dates: start: 20161123, end: 20161211
  17. NOVOLIN N [Concomitant]
     Active Substance: INSULIN HUMAN
     Indication: DIABETES MELLITUS
     Dosage: HUMAN 100 UNIT/ML, INJECT 10 UNITS UNDER THE SKIN TWICE A DAY, 3 FOR 90 DAYS
     Route: 065
  18. ASPIRIN 81 [Concomitant]
     Active Substance: ASPIRIN
     Indication: CARDIAC DISORDER
     Dosage: EC TABLET
     Route: 048
  19. NYSTATIN. [Concomitant]
     Active Substance: NYSTATIN
     Indication: FUNGAL INFECTION
     Dosage: 100000 UNT/GM, TOPICAL POWDER  APPLY TO AFFECTED AREA TO SKIN THREE TIMES A DAY
     Route: 061
  20. FINASTERIDE. [Concomitant]
     Active Substance: FINASTERIDE
     Indication: PROSTATOMEGALY
     Dosage: 90 FOR 90 DAYS; TAKE 1 TABLET BY MOUTH AT BEDTIME
     Route: 048
  21. KETOTIFEN [Concomitant]
     Active Substance: KETOTIFEN
     Indication: PRODUCT USED FOR UNKNOWN INDICATION
     Route: 065
  22. SODIUM FLUORIDE. [Concomitant]
     Active Substance: SODIUM FLUORIDE
     Indication: PRODUCT USED FOR UNKNOWN INDICATION
     Dosage: 1.1%,BRUSH 1.1% SPRMINT INSIDE OF MOUTH AT BEDTIME FLOSS AND BUSH, SPIT, BUT DO NOT RINSE OUT
     Route: 065
  23. TAMSULOSIN HCL [Concomitant]
     Active Substance: TAMSULOSIN HYDROCHLORIDE
     Indication: PROSTATOMEGALY
     Dosage: ONE CAPSULE BY MOUTH AT BEDTIME
     Route: 048
  24. OXYCODONE HYDROCHLORIDE. [Concomitant]
     Active Substance: OXYCODONE HYDROCHLORIDE
     Indication: PAIN
     Dosage: 2 TABLETS BY MOUTH 3 TIMES A  DAY AS NEEDED
     Route: 048
  25. MULTIVITAMINS;MINERALS [Concomitant]
     Indication: PRODUCT USED FOR UNKNOWN INDICATION
     Dosage: 100 FOR 90 DAYS
     Route: 048
  26. MICONAZOLE. [Concomitant]
     Active Substance: MICONAZOLE
     Indication: PRODUCT USED FOR UNKNOWN INDICATION
     Route: 065
  27. BUDESONIDE;FORMOTEROL [Concomitant]
     Active Substance: BUDESONIDE\FORMOTEROL
     Indication: RESPIRATORY DISORDER
     Dosage: INHALE 2 INHALATION BY MOUTH TWICE A DAY, 4.5 MCG 12 OD, QT: 3 FOR 90 DAYS
     Route: 055

REACTIONS (1)
  - Gastrointestinal haemorrhage [Recovered/Resolved]

NARRATIVE: CASE EVENT DATE: 20161211
